FAERS Safety Report 9202843 (Version 2)
Quarter: 2013Q2

REPORT INFORMATION
  Report Type: Spontaneous
  Country: GB (occurrence: GB)
  Receive Date: 20130402
  Receipt Date: 20130423
  Transmission Date: 20140414
  Serious: Yes (Hospitalization, Other)
  Sender: FDA-Public Use
  Company Number: GB-ABBOTT-13X-167-1068716-00

PATIENT
  Age: 7 Year
  Sex: Female
  Weight: 30 kg

DRUGS (5)
  1. IBUPROFEN [Suspect]
     Indication: ABDOMINAL PAIN
     Dosage: UNSPECIFIED/DAILY DOSE: 150 MG
     Route: 048
     Dates: start: 20041204, end: 20041204
  2. DICLOFENAC [Suspect]
     Indication: ABDOMINAL PAIN
     Dosage: UNSPECIFIED/DAILY: 25MG
     Route: 054
     Dates: start: 20041202, end: 20041202
  3. CEFTRIAXONE [Concomitant]
     Indication: PRODUCT USED FOR UNKNOWN INDICATION
     Dosage: UNSPECIFIED/DAILY DOSE: 2.4 MG
     Route: 042
     Dates: start: 20041203, end: 20041203
  4. ONDANSETROM [Concomitant]
     Indication: PRODUCT USED FOR UNKNOWN INDICATION
     Dosage: UNSPECIFIED/DAILY DOSE: 3MG
     Route: 042
     Dates: start: 20041203, end: 20041203
  5. PARACETAMOL [Concomitant]
     Indication: PYREXIA
     Dosage: UNKNOWN/DAILY DOSE:450 MG
     Route: 048
     Dates: start: 20041202, end: 20041204

REACTIONS (5)
  - Renal tubular necrosis [Recovered/Resolved]
  - Renal failure acute [Recovered/Resolved]
  - Abdominal pain [Unknown]
  - Vomiting [Unknown]
  - Diarrhoea [Unknown]
